FAERS Safety Report 7930662-3 (Version None)
Quarter: 2011Q4

REPORT INFORMATION
  Report Type: 
  Country: None (occurrence: None)
  Receive Date: 20111121
  Receipt Date: 20111110
  Transmission Date: 20120403
  Serious: Yes (Other)
  Sender: FDA-Public Use
  Company Number: US-US-EMD SERONO, INC.-7007966

PATIENT
  Sex: Male

DRUGS (2)
  1. REBIF [Suspect]
     Indication: MULTIPLE SCLEROSIS
     Route: 058
     Dates: start: 20100407
  2. MOTRIN [Concomitant]
     Indication: PREMEDICATION

REACTIONS (6)
  - COLD SWEAT [None]
  - HEADACHE [None]
  - INJECTION SITE RASH [None]
  - INJECTION SITE ERYTHEMA [None]
  - OPTIC NEURITIS [None]
  - BLOOD GLUCOSE INCREASED [None]
